FAERS Safety Report 7034748-X (Version None)
Quarter: 2010Q4

REPORT INFORMATION
  Report Type: 
  Country: None (occurrence: None)
  Receive Date: 20101008
  Receipt Date: 20100929
  Transmission Date: 20110411
  Serious: Yes (Other)
  Sender: FDA-Public Use
  Company Number: PHFR2010GB04425

PATIENT
  Sex: Male

DRUGS (1)
  1. TEGRETOL [Suspect]
     Indication: NEURALGIA
     Dosage: UNK
     Route: 048
     Dates: end: 20100928

REACTIONS (1)
  - MALIGNANT NEOPLASM PROGRESSION [None]
